FAERS Safety Report 4991156-0 (Version None)
Quarter: 2006Q2

REPORT INFORMATION
  Report Type: 
  Country: None (occurrence: None)
  Receive Date: 20060428
  Receipt Date: 20060412
  Transmission Date: 20061013
  Serious: Yes (Death)
  Sender: FDA-Public Use
  Company Number: GR200604002191

PATIENT
  Age: 88 Year
  Sex: Female
  Weight: 80 kg

DRUGS (6)
  1. TERIPARATIDE(TERIPARATIDE UNKNOWN FORMULATION) UNKNOWN [Suspect]
     Indication: OSTEOPOROSIS
     Dosage: 20 UG, DAILY (1/D), SUBCUTANEOUS
     Route: 058
     Dates: start: 20041001
  2. FORTEO [Concomitant]
  3. ACENOCOUMAROL (ACENOCOUMAROL) [Concomitant]
  4. NISOLDIPINE (NISOLDIPINE) [Concomitant]
  5. FUROSEMIDE [Concomitant]
  6. ENALAPRIL MALEATE [Concomitant]

REACTIONS (5)
  - BLOOD CALCIUM INCREASED [None]
  - BLOOD UREA INCREASED [None]
  - CARDIAC FAILURE [None]
  - HAEMOGLOBIN INCREASED [None]
  - RED BLOOD CELL SEDIMENTATION RATE INCREASED [None]
